FAERS Safety Report 23060624 (Version 1)
Quarter: 2023Q4

REPORT INFORMATION
  Report Type: Spontaneous
  Country: US (occurrence: US)
  Receive Date: 20231012
  Receipt Date: 20231012
  Transmission Date: 20240110
  Serious: No
  Sender: FDA-Public Use
  Company Number: US-Blueprint Medicines Corporation-1526

PATIENT
  Sex: Male

DRUGS (1)
  1. AYVAKIT [Suspect]
     Active Substance: AVAPRITINIB
     Indication: Gastrointestinal stromal tumour
     Route: 065
     Dates: start: 20210810

REACTIONS (8)
  - Apathy [Unknown]
  - Pain [Unknown]
  - Energy increased [Unknown]
  - Depressed mood [Unknown]
  - Loss of personal independence in daily activities [Unknown]
  - General physical health deterioration [Unknown]
  - Emotional disorder [Unknown]
  - Social problem [Unknown]
